FAERS Safety Report 11113032 (Version 2)
Quarter: 2016Q2

REPORT INFORMATION
  Report Type: Report from Study
  Country: US (occurrence: US)
  Receive Date: 20150514
  Receipt Date: 20160524
  Transmission Date: 20160815
  Serious: Yes (Hospitalization)
  Sender: FDA-Public Use
  Company Number: US-ACTELION-A-US2015-117914

PATIENT
  Age: 66 Year
  Sex: Female

DRUGS (14)
  1. VENTAVIS [Suspect]
     Active Substance: ILOPROST
     Dosage: 5 MCG, QID
     Route: 055
  2. LETAIRIS [Concomitant]
     Active Substance: AMBRISENTAN
  3. ADCIRCA [Concomitant]
     Active Substance: TADALAFIL
  4. AZELASTINE [Concomitant]
     Active Substance: AZELASTINE
  5. H.P. ACTHAR [Concomitant]
     Active Substance: CORTICOTROPIN
  6. VENTAVIS [Suspect]
     Active Substance: ILOPROST
     Dosage: 5 MCG, 5X/DAY
     Route: 055
     Dates: start: 20150510
  7. PERCOCET [Concomitant]
     Active Substance: ACETAMINOPHEN\OXYCODONE HYDROCHLORIDE
  8. SPIRIVA [Concomitant]
     Active Substance: TIOTROPIUM BROMIDE MONOHYDRATE
  9. XARELTO [Concomitant]
     Active Substance: RIVAROXABAN
  10. GEMFIBROZIL. [Concomitant]
     Active Substance: GEMFIBROZIL
  11. LASIX [Concomitant]
     Active Substance: FUROSEMIDE
  12. VENTAVIS [Suspect]
     Active Substance: ILOPROST
     Indication: PULMONARY ARTERIAL HYPERTENSION
     Dosage: 5 MCG, 5X/DAY
     Route: 055
     Dates: start: 20130606
  13. DULERA [Concomitant]
     Active Substance: FORMOTEROL FUMARATE DIHYDRATE\MOMETASONE FUROATE
  14. NEXIUM [Concomitant]
     Active Substance: ESOMEPRAZOLE MAGNESIUM

REACTIONS (7)
  - Oral surgery [Unknown]
  - Diabetes mellitus [Recovering/Resolving]
  - Oedema [Recovering/Resolving]
  - Dry mouth [Unknown]
  - Weight increased [Recovering/Resolving]
  - Unevaluable event [Not Recovered/Not Resolved]
  - Nausea [Unknown]
